FAERS Safety Report 8247736-2 (Version None)
Quarter: 2012Q1

REPORT INFORMATION
  Report Type: 
  Country: None (occurrence: None)
  Receive Date: 20120330
  Receipt Date: 20120326
  Transmission Date: 20120608
  Serious: Yes (Other)
  Sender: FDA-Public Use
  Company Number: BR-VIIV HEALTHCARE LIMITED-A0971536A

PATIENT
  Age: 22 Year
  Sex: Female

DRUGS (3)
  1. REYATAZ [Suspect]
     Indication: PROPHYLAXIS AGAINST HIV INFECTION
     Dosage: 400MG PER DAY
     Route: 048
     Dates: start: 20110909, end: 20120202
  2. COMBIVIR [Suspect]
     Indication: PROPHYLAXIS AGAINST HIV INFECTION
     Dosage: 2TAB PER DAY
     Route: 048
     Dates: start: 20110909
  3. KALETRA [Suspect]
     Indication: PROPHYLAXIS AGAINST HIV INFECTION
     Dosage: 6TAB PER DAY
     Route: 048
     Dates: start: 20120202

REACTIONS (2)
  - ABORTION SPONTANEOUS [None]
  - MATERNAL EXPOSURE DURING PREGNANCY [None]
